FAERS Safety Report 19189040 (Version 1)
Quarter: 2021Q2

REPORT INFORMATION
  Report Type: Report from Study
  Country: US (occurrence: US)
  Receive Date: 20210428
  Receipt Date: 20210428
  Transmission Date: 20210717
  Serious: Yes (Other)
  Sender: FDA-Public Use
  Company Number: US-BIOVITRUM-2021US3985

PATIENT
  Age: 55 Year
  Sex: Female

DRUGS (1)
  1. KINERET [Suspect]
     Active Substance: ANAKINRA
     Indication: PERICARDITIS
     Route: 058
     Dates: start: 20200323

REACTIONS (5)
  - Off label use [Not Recovered/Not Resolved]
  - Discouragement [Unknown]
  - Product dose omission issue [Recovered/Resolved]
  - COVID-19 [Unknown]
  - Memory impairment [Unknown]

NARRATIVE: CASE EVENT DATE: 20200323
